FAERS Safety Report 8852333 (Version 2)
Quarter: 2012Q4

REPORT INFORMATION
  Report Type: 
  Country: JP (occurrence: JP)
  Receive Date: 20121022
  Receipt Date: 20121101
  Transmission Date: 20130627
  Serious: No
  Sender: FDA-Public Use
  Company Number: JP-PFIZER INC-2012261661

PATIENT
  Age: 75 Year
  Sex: Male

DRUGS (2)
  1. AMLODIN [Suspect]
     Dosage: 5 mg, Daily
     Route: 048
  2. AVAPRO [Suspect]
     Indication: HYPERTENSION
     Dosage: 100 mg, daily
     Route: 048

REACTIONS (1)
  - Gait disturbance [Recovered/Resolved]
